FAERS Safety Report 16613406 (Version 1)
Quarter: 2019Q3

REPORT INFORMATION
  Report Type: Spontaneous
  Country: US (occurrence: US)
  Receive Date: 20190723
  Receipt Date: 20190723
  Transmission Date: 20191004
  Serious: No
  Sender: FDA-Public Use
  Company Number: US-GLAXOSMITHKLINE-US2019131585

PATIENT
  Age: 73 Year
  Sex: Female

DRUGS (1)
  1. FLONASE [Suspect]
     Active Substance: FLUTICASONE PROPIONATE
     Indication: EAR DISCOMFORT
     Dosage: UNK, QD (2 SPRAY)
     Route: 045
     Dates: start: 201907

REACTIONS (4)
  - Epistaxis [Unknown]
  - Nasal discomfort [Unknown]
  - Off label use [Unknown]
  - Product use in unapproved indication [Unknown]
